FAERS Safety Report 16285783 (Version 3)
Quarter: 2019Q3

REPORT INFORMATION
  Report Type: Spontaneous
  Country: US (occurrence: US)
  Receive Date: 20190508
  Receipt Date: 20190705
  Transmission Date: 20191004
  Serious: No
  Sender: FDA-Public Use
  Company Number: US-ASTRAZENECA-2019SE66566

PATIENT
  Sex: Male
  Weight: 46.7 kg

DRUGS (15)
  1. MOVANTIK [Suspect]
     Active Substance: NALOXEGOL OXALATE
     Dosage: 25.0MG UNKNOWN
     Route: 048
     Dates: start: 20190124, end: 20190425
  2. LORAZEPAM. [Concomitant]
     Active Substance: LORAZEPAM
     Route: 048
  3. MYFORTIC [Concomitant]
     Active Substance: MYCOPHENOLATE SODIUM
  4. RAPAMUNE [Concomitant]
     Active Substance: SIROLIMUS
     Route: 048
  5. ONDANSETRON [Concomitant]
     Active Substance: ONDANSETRON
     Route: 048
  6. SODIUM SULFATE [Concomitant]
     Active Substance: SODIUM SULFATE
     Dosage: 17.5-3.13-1.6 GRAM
  7. XIFAXAN [Concomitant]
     Active Substance: RIFAXIMIN
     Route: 048
  8. MOVANTIK [Suspect]
     Active Substance: NALOXEGOL OXALATE
     Dosage: 25.0MG UNKNOWN
     Route: 048
     Dates: start: 20150707, end: 201902
  9. HYOSCYAMINE SULFATE. [Concomitant]
     Active Substance: HYOSCYAMINE SULFATE
     Route: 048
  10. OXYCODONE [Concomitant]
     Active Substance: OXYCODONE
     Dosage: 10.0MG UNKNOWN
     Route: 048
  11. POTASSIUM CHLORIDE. [Concomitant]
     Active Substance: POTASSIUM CHLORIDE
     Route: 048
  12. GLYCERIN. [Concomitant]
     Active Substance: GLYCERIN
     Route: 054
  13. ASPIRIN. [Concomitant]
     Active Substance: ASPIRIN
     Route: 048
  14. HERBAL LAXATIVE PREPARATION NOS [Concomitant]
     Route: 048
  15. NEXIUM [Concomitant]
     Active Substance: ESOMEPRAZOLE MAGNESIUM
     Route: 048

REACTIONS (6)
  - Panic attack [Recovered/Resolved]
  - Hypophagia [Recovered/Resolved]
  - Diarrhoea [Recovered/Resolved]
  - Renal disorder [Recovered/Resolved]
  - Flatulence [Recovered/Resolved]
  - Muscle spasms [Recovered/Resolved]
